FAERS Safety Report 8411003-4 (Version None)
Quarter: 2012Q2

REPORT INFORMATION
  Report Type: 
  Country: None (occurrence: None)
  Receive Date: 20120605
  Receipt Date: 20120502
  Transmission Date: 20120825
  Serious: No
  Sender: FDA-Public Use
  Company Number: US-AMGEN-USASP2012003345

PATIENT
  Age: 58 Year
  Sex: Female

DRUGS (2)
  1. ENBREL [Suspect]
     Indication: RHEUMATOID ARTHRITIS
     Dosage: 50 MG, QWK
     Dates: start: 20111201
  2. METHOTREXATE [Concomitant]
     Dosage: UNK

REACTIONS (11)
  - NAUSEA [None]
  - JOINT SWELLING [None]
  - CHEST PAIN [None]
  - DIZZINESS [None]
  - GASTRITIS [None]
  - DYSPEPSIA [None]
  - ARTHRALGIA [None]
  - ARTHROPATHY [None]
  - HEADACHE [None]
  - ABDOMINAL PAIN UPPER [None]
  - INJECTION SITE PAIN [None]
